FAERS Safety Report 20245825 (Version 1)
Quarter: 2021Q4

REPORT INFORMATION
  Report Type: Spontaneous
  Country: CA (occurrence: CA)
  Receive Date: 20211229
  Receipt Date: 20211229
  Transmission Date: 20220303
  Serious: Yes (Other)
  Sender: FDA-Public Use
  Company Number: None

PATIENT
  Age: 44 Year
  Sex: Male

DRUGS (12)
  1. METHOTREXATE [Suspect]
     Active Substance: METHOTREXATE
     Indication: Product used for unknown indication
     Route: 065
  2. ROSUVASTATIN CALCIUM [Suspect]
     Active Substance: ROSUVASTATIN CALCIUM
     Indication: Product used for unknown indication
     Route: 048
  3. DICLOFENAC SODIUM [Suspect]
     Active Substance: DICLOFENAC SODIUM
     Indication: Product used for unknown indication
     Route: 065
  4. BACLOFEN [Suspect]
     Active Substance: BACLOFEN
     Indication: Product used for unknown indication
     Route: 065
  5. IRBESARTAN [Suspect]
     Active Substance: IRBESARTAN
     Indication: Product used for unknown indication
     Route: 065
  6. CANNABIS SATIVA FLOWERING TOP [Concomitant]
     Active Substance: CANNABIS SATIVA FLOWERING TOP
  7. CLOBETASOL [Concomitant]
     Active Substance: CLOBETASOL
  8. DETROL [Concomitant]
     Active Substance: TOLTERODINE TARTRATE
  9. MELOXICAM [Concomitant]
     Active Substance: MELOXICAM
  10. METHYLPREDNISOLONE [Concomitant]
     Active Substance: METHYLPREDNISOLONE
  11. NAPROXEN [Concomitant]
     Active Substance: NAPROXEN
  12. NORVASC [Concomitant]
     Active Substance: AMLODIPINE BESYLATE

REACTIONS (10)
  - Arthralgia [Unknown]
  - Blood pressure systolic increased [Unknown]
  - Drug ineffective [Unknown]
  - Inflammatory marker increased [Unknown]
  - Joint swelling [Unknown]
  - Lipoma [Unknown]
  - Musculoskeletal discomfort [Unknown]
  - Prostatic specific antigen increased [Unknown]
  - Psoriasis [Unknown]
  - Seronegative arthritis [Unknown]
